FAERS Safety Report 10234777 (Version 1)
Quarter: 2014Q1

REPORT INFORMATION
  Report Type: Spontaneous
  Country: US (occurrence: None)
  Receive Date: 20140306
  Receipt Date: 20140306
  Transmission Date: 20141002
  Serious: Yes (Other)
  Sender: FDA-Public Use
  Company Number: 163-21880-13050316

PATIENT
  Age: 85 Year
  Sex: Female

DRUGS (8)
  1. REVLIMID (LENALIDOMIDE) (5 MILLIGRAM, CAPSULES) [Suspect]
     Indication: MYELODYSPLASTIC SYNDROME
     Route: 048
     Dates: start: 20101023
  2. ATENOLOL (ATENOLOL) (TABLETS) [Concomitant]
  3. DIGOXIN (DIGOXIN) (TABLETS) [Concomitant]
  4. JANUVIA (SITAGLIPTIN PHOSPHATE) (TABLETS) [Concomitant]
  5. PRADAXA (DABIGATRAN ETEXILATE MESILATE) (CAPSULES) [Concomitant]
  6. SPIRONOLACTONE (SPIRONOLACTONE) [Concomitant]
  7. ZOCOR (SIMVASTATIN) [Concomitant]
  8. ZOLOFT (SERTRALINE HYDROCHLORIDE) [Concomitant]

REACTIONS (5)
  - Fall [None]
  - Spinal fracture [None]
  - Lactose intolerance [None]
  - Back disorder [None]
  - Diarrhoea [None]
